FAERS Safety Report 24563437 (Version 1)
Quarter: 2024Q4

REPORT INFORMATION
  Report Type: Other
  Country: NZ (occurrence: NZ)
  Receive Date: 20241030
  Receipt Date: 20241030
  Transmission Date: 20250115
  Serious: Yes (Hospitalization)
  Sender: ANI
  Company Number: NZ-ANIPHARMA-012673

PATIENT
  Age: 79 Year
  Sex: Female

DRUGS (14)
  1. METOLAZONE [Suspect]
     Active Substance: METOLAZONE
     Indication: Right ventricular failure
  2. FUROSEMIDE [Suspect]
     Active Substance: FUROSEMIDE
     Indication: Right ventricular failure
     Route: 058
  3. EMPAGLIFLOZIN [Concomitant]
     Active Substance: EMPAGLIFLOZIN
     Indication: Right ventricular failure
  4. SPIRONOLACTONE [Concomitant]
     Active Substance: SPIRONOLACTONE
     Indication: Right ventricular failure
  5. EPLERENONE [Concomitant]
     Active Substance: EPLERENONE
     Indication: Right ventricular failure
  6. ACETAZOLAMIDE [Concomitant]
     Active Substance: ACETAZOLAMIDE
     Indication: Right ventricular failure
  7. ISOSORBIDE MONONITRATE [Concomitant]
     Active Substance: ISOSORBIDE MONONITRATE
     Indication: Right ventricular failure
  8. QUINAPRIL [Concomitant]
     Active Substance: QUINAPRIL
     Indication: Right ventricular failure
  9. CLOPIDOGREL [Concomitant]
     Active Substance: CLOPIDOGREL BISULFATE
     Indication: Right ventricular failure
  10. ROSUVASTATIN [Concomitant]
     Active Substance: ROSUVASTATIN
     Indication: Right ventricular failure
  11. DABIGATRAN [Concomitant]
     Active Substance: DABIGATRAN
     Indication: Right ventricular failure
  12. NITROGLYCERIN [Concomitant]
     Active Substance: NITROGLYCERIN
     Indication: Right ventricular failure
  13. FUROSEMIDE [Suspect]
     Active Substance: FUROSEMIDE
     Indication: Right ventricular failure
  14. FUROSEMIDE [Suspect]
     Active Substance: FUROSEMIDE
     Indication: Right ventricular failure
     Route: 048

REACTIONS (2)
  - Drug intolerance [Unknown]
  - Drug ineffective [Unknown]
